FAERS Safety Report 8169022-1 (Version None)
Quarter: 2012Q1

REPORT INFORMATION
  Report Type: 
  Country: None (occurrence: None)
  Receive Date: 20120227
  Receipt Date: 20120217
  Transmission Date: 20120608
  Serious: Yes (Hospitalization, Other)
  Sender: FDA-Public Use
  Company Number: PHHO2012FR001584

PATIENT
  Sex: Female
  Weight: 30.4 kg

DRUGS (7)
  1. ETOPOSIDE [Concomitant]
     Indication: BONE SARCOMA
     Dosage: 84 MG, UNK
     Route: 042
     Dates: start: 20110816
  2. LEVOLEUCOVORIN CALCIUM [Concomitant]
     Indication: PROPHYLAXIS
     Dosage: UNK
     Route: 048
     Dates: start: 20110726
  3. METHOTREXATE [Suspect]
     Indication: BONE SARCOMA
     Dosage: 13.6 G, UNK
     Route: 042
     Dates: start: 20110726
  4. IFOSFAMIDE [Concomitant]
     Indication: BONE SARCOMA
     Dosage: 3.4 MG, UNK
     Route: 042
     Dates: start: 20110816
  5. NO TREATMENT RECEIVED [Suspect]
     Dosage: NO TREATMENT
  6. ZOFRAN [Concomitant]
     Indication: PROPHYLAXIS OF NAUSEA AND VOMITING
     Dosage: UNK
     Route: 048
     Dates: start: 20110726
  7. POLYETHYLENE GLYCOL [Concomitant]
     Indication: CONSTIPATION PROPHYLAXIS
     Dosage: UNK
     Route: 048
     Dates: start: 20111128

REACTIONS (2)
  - MALNUTRITION [None]
  - CELLULITIS [None]
